FAERS Safety Report 4371353-8 (Version None)
Quarter: 2004Q2

REPORT INFORMATION
  Report Type: 
  Country: None (occurrence: None)
  Receive Date: 20040601
  Receipt Date: 20040517
  Transmission Date: 20050107
  Serious: Yes (Other)
  Sender: FDA-Public Use
  Company Number: 2004033307

PATIENT
  Sex: Female
  Weight: 49.8957 kg

DRUGS (8)
  1. NARDIL [Suspect]
     Indication: EATING DISORDER
     Dosage: 45 (15 MG, 1 IN 1 D) ORAL
     Route: 048
     Dates: start: 19830101
  2. PSEUDOEPHEDRINE HCL [Suspect]
     Indication: INFLUENZA
  3. PROCAINE HCL [Suspect]
     Indication: DENTAL TREATMENT
     Dates: start: 19940101
  4. ALL OTHER NON-THERAPEUTIC PRODUCTS (ALL OTHER NON-THERAPEUTIC PRODUCTS [Suspect]
     Indication: ILL-DEFINED DISORDER
     Dosage: ORAL
     Route: 048
     Dates: start: 19940101
  5. PROVELLA-14 (ESTROGENS CONJUGATED, MEDROXYPROGESTERONE ACETATE) [Suspect]
     Indication: MENOPAUSE
  6. ESTRADIOL [Concomitant]
  7. FLURAZEPAM HYDROCHLORIDE (FLURAZEPAM HYDROCHLORIDE) [Concomitant]
  8. PROGESTERONE [Concomitant]

REACTIONS (13)
  - ASTHENIA [None]
  - CERVIX CARCINOMA [None]
  - DIZZINESS [None]
  - DRUG INTERACTION [None]
  - FALL [None]
  - FEELING ABNORMAL [None]
  - INFLUENZA [None]
  - LOSS OF CONSCIOUSNESS [None]
  - MENOPAUSE [None]
  - SINUS DISORDER [None]
  - SKIN DISCOLOURATION [None]
  - TOOTH INJURY [None]
  - TREMOR [None]
